FAERS Safety Report 8388747 (Version 3)
Quarter: 2014Q4

REPORT INFORMATION
  Report Type: Spontaneous
  Country: US (occurrence: US)
  Receive Date: 20120203
  Receipt Date: 20141120
  Transmission Date: 20150529
  Serious: Yes (Life-Threatening, Congenital Anomaly, Other)
  Sender: FDA-Public Use
  Company Number: US-PFIZER INC-2012026213

PATIENT
  Sex: Male

DRUGS (11)
  1. HYDROCODONE/APAP [Concomitant]
     Active Substance: ACETAMINOPHEN\HYDROCODONE
     Dosage: UNK
     Route: 064
  2. METOCLOPRAMIDE. [Concomitant]
     Active Substance: METOCLOPRAMIDE
     Dosage: 5MG/5ML SYRUP, UNK
     Route: 064
  3. SERTRALINE [Concomitant]
     Active Substance: SERTRALINE HYDROCHLORIDE
     Dosage: 50 MG, UNK
     Route: 064
     Dates: start: 20090917
  4. ZOLOFT [Suspect]
     Active Substance: SERTRALINE HYDROCHLORIDE
     Indication: ANXIETY
  5. CEPHALEXIN. [Concomitant]
     Active Substance: CEPHALEXIN
     Dosage: UNK
     Route: 064
  6. ZOLOFT [Suspect]
     Active Substance: SERTRALINE HYDROCHLORIDE
     Indication: POSTPARTUM DEPRESSION
     Dosage: 50 MG, UNK
     Route: 064
     Dates: start: 200611, end: 2014
  7. RANITIDINE [Concomitant]
     Active Substance: RANITIDINE\RANITIDINE HYDROCHLORIDE
     Dosage: 15MG/ML SYRUP, UNK
     Route: 064
  8. PRENATAL VITAMINS [Concomitant]
     Active Substance: VITAMINS
     Dosage: UNK
     Route: 064
  9. CALCIUM [Concomitant]
     Active Substance: CALCIUM
     Dosage: UNK
     Route: 064
  10. ALPRAZOLAM. [Concomitant]
     Active Substance: ALPRAZOLAM
     Dosage: 1 MG, UNK
     Route: 064
  11. FUROSEMIDE. [Concomitant]
     Active Substance: FUROSEMIDE
     Dosage: UNK
     Route: 064

REACTIONS (6)
  - Pulmonary artery atresia [Unknown]
  - Congenital pulmonary hypertension [Unknown]
  - Maternal exposure timing unspecified [Unknown]
  - Pulmonary artery stenosis congenital [Unknown]
  - Fallot^s tetralogy [Unknown]
  - Congenital pulmonary artery anomaly [Unknown]

NARRATIVE: CASE EVENT DATE: 20100514
